FAERS Safety Report 17475416 (Version 1)
Quarter: 2020Q1

REPORT INFORMATION
  Report Type: Report from Study
  Country: CA (occurrence: CA)
  Receive Date: 20200228
  Receipt Date: 20200228
  Transmission Date: 20200409
  Serious: Yes (Other)
  Sender: FDA-Public Use
  Company Number: CA-JNJFOC-20190814120

PATIENT
  Age: 20 Year
  Sex: Male
  Weight: 83.9 kg

DRUGS (3)
  1. NAPROXEN. [Concomitant]
     Active Substance: NAPROXEN
  2. CELECOXIB. [Concomitant]
     Active Substance: CELECOXIB
  3. STELARA [Suspect]
     Active Substance: USTEKINUMAB
     Indication: CROHN^S DISEASE
     Route: 058
     Dates: start: 20180601

REACTIONS (7)
  - Therapeutic product effect decreased [Unknown]
  - General physical health deterioration [Unknown]
  - Tooth infection [Not Recovered/Not Resolved]
  - Nasal congestion [Not Recovered/Not Resolved]
  - Arthralgia [Not Recovered/Not Resolved]
  - Crohn^s disease [Not Recovered/Not Resolved]
  - Treatment noncompliance [Unknown]

NARRATIVE: CASE EVENT DATE: 201908
